FAERS Safety Report 8274130-0 (Version None)
Quarter: 2012Q2

REPORT INFORMATION
  Report Type: 
  Country: None (occurrence: None)
  Receive Date: 20120411
  Receipt Date: 20120405
  Transmission Date: 20120825
  Serious: No
  Sender: FDA-Public Use
  Company Number: US-PFIZER INC-2011050253

PATIENT
  Sex: Female
  Weight: 141.95 kg

DRUGS (4)
  1. EFFEXOR XR [Suspect]
     Dosage: 225 MG, 1X/DAY
     Route: 048
     Dates: start: 20120101, end: 20120404
  2. FLEXERIL [Concomitant]
     Dosage: UNK
  3. EFFEXOR XR [Suspect]
     Indication: FIBROMYALGIA
     Dosage: 187.5 MG, 1X/DAY
     Route: 048
     Dates: start: 20060901, end: 20120101
  4. NAPROXEN [Concomitant]
     Indication: OSTEOARTHRITIS
     Dosage: 500 MG, UNK

REACTIONS (8)
  - HYPERHIDROSIS [None]
  - HEADACHE [None]
  - DIARRHOEA [None]
  - FEELING ABNORMAL [None]
  - MALAISE [None]
  - NAUSEA [None]
  - ABDOMINAL DISCOMFORT [None]
  - DEPRESSED MOOD [None]
